FAERS Safety Report 6966434-6 (Version None)
Quarter: 2010Q3

REPORT INFORMATION
  Report Type: 
  Country: None (occurrence: None)
  Receive Date: 20100906
  Receipt Date: 20100826
  Transmission Date: 20110219
  Serious: Yes (Death, Hospitalization, Other)
  Sender: FDA-Public Use
  Company Number: TW-BRISTOL-MYERS SQUIBB COMPANY-15252265

PATIENT
  Age: 42 Year
  Sex: Female

DRUGS (5)
  1. CYCLOPHOSPHAMIDE [Suspect]
     Indication: MYCOSIS FUNGOIDES
  2. DOXORUBICIN HCL [Suspect]
     Indication: MYCOSIS FUNGOIDES
  3. BLEOMYCIN SULFATE [Suspect]
     Indication: MYCOSIS FUNGOIDES
  4. VINCRISTINE [Suspect]
     Indication: MYCOSIS FUNGOIDES
  5. PREDNISOLONE [Suspect]
     Indication: MYCOSIS FUNGOIDES

REACTIONS (4)
  - MALIGNANT NEOPLASM PROGRESSION [None]
  - MENOPAUSE [None]
  - SEPSIS [None]
  - VAGINAL OBSTRUCTION [None]
